FAERS Safety Report 6174861-2 (Version None)
Quarter: 2009Q2

REPORT INFORMATION
  Report Type: 
  Country: None (occurrence: None)
  Receive Date: 20090430
  Receipt Date: 20081203
  Transmission Date: 20091009
  Serious: No
  Sender: FDA-Public Use
  Company Number: US-ASTRAZENECA-2008UW26930

PATIENT
  Sex: Female

DRUGS (3)
  1. NEXIUM [Suspect]
     Indication: HELICOBACTER INFECTION
     Route: 048
  2. BIAXIN [Suspect]
     Indication: HELICOBACTER GASTRITIS
     Route: 065
  3. AMOXICILLIN [Suspect]
     Indication: HELICOBACTER GASTRITIS
     Route: 065

REACTIONS (1)
  - COGNITIVE DISORDER [None]
